FAERS Safety Report 5668193-6 (Version None)
Quarter: 2008Q1

REPORT INFORMATION
  Report Type: 
  Country: None (occurrence: None)
  Receive Date: 20080313
  Receipt Date: 20080303
  Transmission Date: 20080703
  Serious: Yes (Hospitalization, Disabling)
  Sender: FDA-Public Use
  Company Number: 2008005571

PATIENT
  Age: 25 Year
  Sex: Male
  Weight: 77 kg

DRUGS (3)
  1. MYLANTA PLUS [Suspect]
     Indication: GASTRITIS
     Dosage: 1 SPOON (3 IN 1 D), ORAL
     Route: 048
     Dates: start: 20080229
  2. PANTOPRAZOLE SODIUM [Concomitant]
  3. BROMOPRIDE) [Concomitant]

REACTIONS (5)
  - ASTHENIA [None]
  - DECREASED APPETITE [None]
  - DYSPNOEA [None]
  - HEMIPLEGIA [None]
  - MALAISE [None]
